FAERS Safety Report 9902601 (Version 3)
Quarter: 2015Q3

REPORT INFORMATION
  Report Type: Spontaneous
  Country: US (occurrence: US)
  Receive Date: 20140217
  Receipt Date: 20150810
  Transmission Date: 20151125
  Serious: No
  Sender: FDA-Public Use
  Company Number: US-GILEAD-2011-0044594

PATIENT
  Age: 13 Year
  Sex: Male

DRUGS (5)
  1. TYVASO [Concomitant]
     Active Substance: TREPROSTINIL
     Dosage: 5 MG, UNK
     Route: 048
     Dates: start: 20110325
  2. LETAIRIS [Suspect]
     Active Substance: AMBRISENTAN
     Indication: HEREDITARY HAEMORRHAGIC TELANGIECTASIA
  3. ABILIFY [Concomitant]
     Active Substance: ARIPIPRAZOLE
  4. LITHIUM. [Concomitant]
     Active Substance: LITHIUM
  5. LETAIRIS [Suspect]
     Active Substance: AMBRISENTAN
     Indication: PULMONARY HYPERTENSION
     Dosage: 5 MG, UNK
     Route: 048
     Dates: start: 20110325

REACTIONS (2)
  - Syncope [Unknown]
  - Dizziness [Unknown]
